APPROVED DRUG PRODUCT: AZITHROMYCIN
Active Ingredient: AZITHROMYCIN
Strength: EQ 100MG BASE/5ML
Dosage Form/Route: FOR SUSPENSION;ORAL
Application: A217036 | Product #001 | TE Code: AB
Applicant: ZHEJIANG POLY PHARM CO LTD
Approved: Jul 27, 2023 | RLD: No | RS: No | Type: RX